FAERS Safety Report 25887584 (Version 1)
Quarter: 2025Q4

REPORT INFORMATION
  Report Type: Spontaneous
  Country: CN (occurrence: CN)
  Receive Date: 20251007
  Receipt Date: 20251007
  Transmission Date: 20260117
  Serious: Yes (Hospitalization, Other)
  Sender: Haleon PLC
  Company Number: CN-HALEON-2266168

PATIENT
  Age: 37 Year
  Sex: Female
  Weight: 55 kg

DRUGS (1)
  1. VOLTAREN [Suspect]
     Active Substance: DICLOFENAC SODIUM
     Indication: Back pain
     Dosage: SUSTAINED RELEASE TABLETS
     Route: 048
     Dates: start: 20250718, end: 20250722

REACTIONS (6)
  - Hepatic failure [Recovering/Resolving]
  - Pallor [Recovering/Resolving]
  - Chromaturia [Recovering/Resolving]
  - Asthenia [Recovering/Resolving]
  - Abdominal distension [Recovering/Resolving]
  - Hepatic function abnormal [Recovering/Resolving]

NARRATIVE: CASE EVENT DATE: 20250722
